FAERS Safety Report 20756751 (Version 1)
Quarter: 2022Q2

REPORT INFORMATION
  Report Type: Spontaneous
  Country: CN (occurrence: CN)
  Receive Date: 20220427
  Receipt Date: 20220427
  Transmission Date: 20220720
  Serious: Yes (Hospitalization)
  Sender: FDA-Public Use
  Company Number: CN-PFIZER INC-202200581739

PATIENT
  Age: 21 Year
  Sex: Male
  Weight: 59 kg

DRUGS (6)
  1. EPIRUBICIN HYDROCHLORIDE [Suspect]
     Active Substance: EPIRUBICIN HYDROCHLORIDE
     Indication: Bone sarcoma
     Dosage: 60 MG, 1X/DAY
     Route: 041
     Dates: start: 20220321, end: 20220322
  2. IFOSFAMIDE [Suspect]
     Active Substance: IFOSFAMIDE
     Indication: Bone sarcoma
     Dosage: 3 G, 1X/DAY
     Route: 041
     Dates: start: 20220329, end: 20220402
  3. CISPLATIN [Suspect]
     Active Substance: CISPLATIN
     Indication: Bone sarcoma
     Dosage: 180 MG, 1X/DAY
     Route: 041
     Dates: start: 20220323, end: 20220323
  4. SODIUM CHLORIDE [Concomitant]
     Active Substance: SODIUM CHLORIDE
     Indication: Vehicle solution use
     Dosage: 100 ML, 1X/DAY
     Route: 041
     Dates: start: 20220321, end: 20220322
  5. SODIUM CHLORIDE [Concomitant]
     Active Substance: SODIUM CHLORIDE
     Indication: Vehicle solution use
     Dosage: 250 ML, 1X/DAY
     Route: 041
     Dates: start: 20220329, end: 20220402
  6. DEXTROSE\SODIUM CHLORIDE [Concomitant]
     Active Substance: DEXTROSE\SODIUM CHLORIDE
     Indication: Vehicle solution use
     Dosage: 500 ML, 1X/DAY
     Route: 041
     Dates: start: 20220323, end: 20220323

REACTIONS (3)
  - White blood cell count decreased [Recovered/Resolved]
  - C-reactive protein increased [Unknown]
  - Myelosuppression [Unknown]

NARRATIVE: CASE EVENT DATE: 20220401
